FAERS Safety Report 11675486 (Version 1)
Quarter: 2015Q4

REPORT INFORMATION
  Report Type: Spontaneous
  Country: US (occurrence: US)
  Receive Date: 20151027
  Receipt Date: 20151027
  Transmission Date: 20160304
  Serious: No
  Sender: FDA-Public Use
  Company Number: US-ELI_LILLY_AND_COMPANY-US201008009004

PATIENT
  Sex: Female

DRUGS (13)
  1. ZETIA [Concomitant]
     Active Substance: EZETIMIBE
  2. LIPITOR [Concomitant]
     Active Substance: ATORVASTATIN CALCIUM
  3. LIBRAX [Concomitant]
     Active Substance: CHLORDIAZEPOXIDE HYDROCHLORIDE\CLIDINIUM BROMIDE
  4. CALTRATE /00108001/ [Concomitant]
  5. MULTI-VIT [Concomitant]
     Active Substance: VITAMINS
  6. SUDAFED [Concomitant]
     Active Substance: PSEUDOEPHEDRINE HYDROCHLORIDE
  7. ASPIRIN. [Concomitant]
     Active Substance: ASPIRIN
  8. LORAZEPAM. [Concomitant]
     Active Substance: LORAZEPAM
  9. MEDROL [Concomitant]
     Active Substance: METHYLPREDNISOLONE
  10. FORTEO [Suspect]
     Active Substance: TERIPARATIDE
     Indication: OSTEOPOROSIS
     Dosage: 20 UG, DAILY (1/D)
     Dates: start: 20100826
  11. ZANAFLEX [Concomitant]
     Active Substance: TIZANIDINE HYDROCHLORIDE
  12. PRILOSEC [Concomitant]
     Active Substance: OMEPRAZOLE MAGNESIUM
  13. NITROQUICK [Concomitant]
     Active Substance: NITROGLYCERIN

REACTIONS (2)
  - Abdominal pain [Not Recovered/Not Resolved]
  - Gastrointestinal motility disorder [Unknown]
